FAERS Safety Report 9658505 (Version 1)
Quarter: 2013Q4

REPORT INFORMATION
  Report Type: Spontaneous
  Country: US (occurrence: US)
  Receive Date: 20131030
  Receipt Date: 20131030
  Transmission Date: 20140711
  Serious: Yes (Other)
  Sender: FDA-Public Use
  Company Number: US-NAPPMUNDI-USA-2011-0076548

PATIENT
  Sex: Male

DRUGS (2)
  1. OXYCONTIN (NDA 22-272) [Suspect]
     Indication: SUBSTANCE ABUSE
  2. HEROIN [Suspect]
     Indication: SUBSTANCE ABUSE

REACTIONS (2)
  - Polysubstance dependence [Recovering/Resolving]
  - Substance abuse [Recovering/Resolving]
